FAERS Safety Report 9520489 (Version 1)
Quarter: 2013Q3

REPORT INFORMATION
  Report Type: Report from Study
  Country: CN (occurrence: CN)
  Receive Date: 20130913
  Receipt Date: 20130913
  Transmission Date: 20140515
  Serious: Yes (Other)
  Sender: FDA-Public Use
  Company Number: CN-ROCHE-1273830

PATIENT
  Sex: 0

DRUGS (4)
  1. CAPECITABINE [Suspect]
     Indication: BREAST CANCER
     Route: 065
  2. GEMCITABINE [Suspect]
     Indication: BREAST CANCER
     Route: 065
  3. VINORELBINE [Suspect]
     Indication: BREAST CANCER
     Route: 065
  4. ETOPOSIDE [Suspect]
     Indication: BREAST CANCER
     Route: 065

REACTIONS (9)
  - Neutropenia [Unknown]
  - Leukopenia [Unknown]
  - Thrombocytopenia [Unknown]
  - Anaemia [Unknown]
  - Fatigue [Unknown]
  - Alanine aminotransferase increased [Unknown]
  - Hyperglycaemia [Unknown]
  - Vision blurred [Unknown]
  - Palmar-plantar erythrodysaesthesia syndrome [Unknown]
